FAERS Safety Report 21031711 (Version 1)
Quarter: 2022Q3

REPORT INFORMATION
  Report Type: Other
  Country: US (occurrence: None)
  Receive Date: 20220701
  Receipt Date: 20220701
  Transmission Date: 20221026
  Serious: No
  Sender: FDA-Public Use
  Company Number: US-ROCHE-2934904

PATIENT
  Age: 16 Year
  Sex: Female
  Weight: 129 kg

DRUGS (6)
  1. TOCILIZUMAB [Suspect]
     Active Substance: TOCILIZUMAB
     Indication: COVID-19
     Route: 065
  2. INSULIN NOS [Concomitant]
     Active Substance: INSULIN NOS
     Dosage: 0.05 UNITS/KG/H
     Route: 042
  3. DANTROLENE [Concomitant]
     Active Substance: DANTROLENE
     Route: 042
  4. NITRIC OXIDE [Concomitant]
     Active Substance: NITRIC OXIDE
     Route: 055
  5. HEPARIN [Concomitant]
     Active Substance: HEPARIN SODIUM
  6. LOVENOX [Concomitant]
     Active Substance: ENOXAPARIN SODIUM

REACTIONS (2)
  - Off label use [Unknown]
  - No adverse event [Unknown]
